FAERS Safety Report 8521636-2 (Version None)
Quarter: 2012Q3

REPORT INFORMATION
  Report Type: 
  Country: None (occurrence: None)
  Receive Date: 20120719
  Receipt Date: 20120716
  Transmission Date: 20120928
  Serious: Yes (Death, Other)
  Sender: FDA-Public Use
  Company Number: PHHY2012BR061446

PATIENT
  Sex: Male
  Weight: 69 kg

DRUGS (2)
  1. DIOVAN [Suspect]
     Indication: RENAL DISORDER
  2. DIOVAN [Suspect]
     Indication: HYPERTENSION
     Dosage: UNK UKN, UNK
     Route: 048

REACTIONS (7)
  - LUNG NEOPLASM MALIGNANT [None]
  - DIARRHOEA [None]
  - CONDITION AGGRAVATED [None]
  - BONE NEOPLASM [None]
  - METASTASIS [None]
  - RENAL CANCER [None]
  - RENAL IMPAIRMENT [None]
